FAERS Safety Report 5755090-0 (Version None)
Quarter: 2008Q2

REPORT INFORMATION
  Report Type: 
  Country: None (occurrence: None)
  Receive Date: 20080602
  Receipt Date: 20080102
  Transmission Date: 20081010
  Serious: No
  Sender: FDA-Public Use
  Company Number: A0701015A

PATIENT
  Age: 55 Year
  Sex: Male

DRUGS (10)
  1. AMOXICILLIN + CLAVULANATE POTASSIUM [Suspect]
     Indication: ACUTE SINUSITIS
     Dosage: 875MG TWICE PER DAY
     Route: 048
     Dates: start: 20071219, end: 20071231
  2. RESTORIL [Concomitant]
  3. REQUIP [Concomitant]
  4. RELPAX [Concomitant]
  5. VALIUM [Concomitant]
  6. ZOVIRAX [Concomitant]
  7. VITAMIN CAP [Concomitant]
  8. VITAMIN B-12 [Concomitant]
  9. VITAMIN D [Concomitant]
  10. VITAMIN E [Concomitant]

REACTIONS (7)
  - AGEUSIA [None]
  - DIARRHOEA [None]
  - DYSGEUSIA [None]
  - GINGIVAL PAIN [None]
  - MUCOSAL DISCOLOURATION [None]
  - ORAL DISCOMFORT [None]
  - TONGUE COATED [None]
